FAERS Safety Report 5836011-9 (Version None)
Quarter: 2008Q3

REPORT INFORMATION
  Report Type: 
  Country: None (occurrence: None)
  Receive Date: 20080806
  Receipt Date: 20080730
  Transmission Date: 20090109
  Serious: Yes (Disabling)
  Sender: FDA-Public Use
  Company Number: CA-PFIZER INC-2008056282

PATIENT
  Age: 40 Year
  Sex: Female

DRUGS (3)
  1. LYRICA [Suspect]
     Indication: PAIN
     Route: 048
  2. MS CONTIN [Concomitant]
  3. DILAUDID [Concomitant]

REACTIONS (3)
  - CONTUSION [None]
  - ECCHYMOSIS [None]
  - PAIN [None]
